FAERS Safety Report 4572244-X (Version None)
Quarter: 2005Q1

REPORT INFORMATION
  Report Type: 
  Country: None (occurrence: None)
  Receive Date: 20050203
  Receipt Date: 20050121
  Transmission Date: 20050727
  Serious: Yes (Hospitalization)
  Sender: FDA-Public Use
  Company Number: A02200500027

PATIENT
  Age: 73 Year
  Sex: Male

DRUGS (3)
  1. PLAVIX [Suspect]
     Indication: ACUTE CORONARY SYNDROME
     Dosage: 75 MG OD ORAL
     Route: 048
     Dates: start: 20041008, end: 20041009
  2. ASPEGIC 1000 [Suspect]
     Indication: ACUTE CORONARY SYNDROME
     Dosage: 250 MG ORAL
     Route: 048
     Dates: start: 20041008, end: 20041009
  3. HEPARIN SODIUM - SOLUTION [Suspect]
     Indication: ACUTE CORONARY SYNDROME
     Dosage: INTRAVENOUS NOS
     Route: 042
     Dates: start: 20041008, end: 20041009

REACTIONS (3)
  - HAEMATOMA [None]
  - SHOCK HAEMORRHAGIC [None]
  - URETERAL NECROSIS [None]
